FAERS Safety Report 6906835 (Version 2)
Quarter: 2017Q3

REPORT INFORMATION
  Report Type: Spontaneous
  Country: GB (occurrence: GB)
  Receive Date: 20090211
  Receipt Date: 20170725
  Transmission Date: 20171128
  Serious: Yes (Other)
  Sender: FDA-Public Use
  Company Number: GB-TEVA-184981ISR

PATIENT
  Age: 63 Year
  Sex: Female

DRUGS (1)
  1. NIFEDIPINE. [Suspect]
     Active Substance: NIFEDIPINE
     Route: 065

REACTIONS (3)
  - Hyperkeratosis [Unknown]
  - Oedema peripheral [Unknown]
  - Purpura [Unknown]
